FAERS Safety Report 6312232-6 (Version None)
Quarter: 2009Q3

REPORT INFORMATION
  Report Type: 
  Country: None (occurrence: None)
  Receive Date: 20090813
  Receipt Date: 20090813
  Transmission Date: 20100115
  Serious: Yes (Other)
  Sender: FDA-Public Use
  Company Number: None

PATIENT
  Age: 89 Year
  Sex: Female

DRUGS (1)
  1. GABAPENTIN [Suspect]
     Dosage: 1 TO 2 CAPSULES 4 TIMES/DAY PO
     Route: 048
     Dates: start: 20090718, end: 20090812

REACTIONS (2)
  - DIZZINESS [None]
  - PRODUCT SUBSTITUTION ISSUE [None]
